FAERS Safety Report 24915391 (Version 1)
Quarter: 2025Q1

REPORT INFORMATION
  Report Type: Spontaneous
  Country: HU (occurrence: HU)
  Receive Date: 20250203
  Receipt Date: 20250203
  Transmission Date: 20250409
  Serious: Yes (Other)
  Sender: ROCHE
  Company Number: HU-ROCHE-10000192290

PATIENT
  Age: 40 Year

DRUGS (1)
  1. OCREVUS [Suspect]
     Active Substance: OCRELIZUMAB
     Indication: Product used for unknown indication
     Route: 065

REACTIONS (5)
  - Upper respiratory tract infection [Unknown]
  - Cough [Unknown]
  - Sinusitis [Unknown]
  - Pneumonia [Unknown]
  - Immunosuppression [Unknown]
